FAERS Safety Report 26159169 (Version 1)
Quarter: 2025Q4

REPORT INFORMATION
  Report Type: Report from Study
  Country: EU (occurrence: EU)
  Receive Date: 20251216
  Receipt Date: 20251216
  Transmission Date: 20260118
  Serious: Yes (Hospitalization)
  Sender: ABBVIE
  Company Number: EU-ABBVIE-6589351

PATIENT
  Age: 83 Year
  Sex: Female
  Weight: 62 kg

DRUGS (11)
  1. FOSCARBIDOPA\FOSLEVODOPA [Suspect]
     Active Substance: FOSCARBIDOPA\FOSLEVODOPA
     Indication: Parkinson^s disease
     Dosage: DURATION OF THE DAILY INFUSION: 24 HOURS; BASAL RATE: 0.45 ML/H DURATION 16. HOURS MORNING AFTERN...
     Route: 058
     Dates: start: 20241230
  2. FOSCARBIDOPA\FOSLEVODOPA [Suspect]
     Active Substance: FOSCARBIDOPA\FOSLEVODOPA
     Dosage: DOSE INCREASED; DURATION OF THE DAILY INFUSION: 24 HOURS; BASAL RATE: 0. 55ML/H DURATION 16. HOUR...
     Route: 058
     Dates: start: 20250128, end: 20250418
  3. FOSCARBIDOPA\FOSLEVODOPA [Suspect]
     Active Substance: FOSCARBIDOPA\FOSLEVODOPA
     Dosage: DOSE INCREASED; DURATION OF THE DAILY INFUSION: 24 HOURS; BASAL RATE: 0. 57ML/H DURATION 16. HOUR...
     Route: 058
     Dates: start: 20250418
  4. PRAMIPEXOLE [Concomitant]
     Active Substance: PRAMIPEXOLE
     Indication: Parkinson^s disease
     Dates: start: 20250418
  5. CLOZAPINE [Concomitant]
     Active Substance: CLOZAPINE
     Indication: Parkinson^s disease
     Dates: start: 20250418
  6. CLOZAPINE [Concomitant]
     Active Substance: CLOZAPINE
     Indication: Parkinson^s disease
     Dates: end: 20250418
  7. APIXABAN [Concomitant]
     Active Substance: APIXABAN
     Indication: Parkinson^s disease
  8. PRAVASTATIN [Concomitant]
     Active Substance: PRAVASTATIN
     Indication: Parkinson^s disease
  9. LERCANIDIPINE [Concomitant]
     Active Substance: LERCANIDIPINE
     Indication: Parkinson^s disease
  10. FUROSEMIDE [Concomitant]
     Active Substance: FUROSEMIDE
     Indication: Parkinson^s disease
  11. LANSOPRAZOLE [Concomitant]
     Active Substance: LANSOPRAZOLE
     Indication: Parkinson^s disease

REACTIONS (1)
  - Femoral neck fracture [Recovering/Resolving]

NARRATIVE: CASE EVENT DATE: 20251201
